FAERS Safety Report 9588541 (Version 1)
Quarter: 2013Q4

REPORT INFORMATION
  Report Type: Spontaneous
  Country: US (occurrence: US)
  Receive Date: 20131003
  Receipt Date: 20131003
  Transmission Date: 20140711
  Serious: No
  Sender: FDA-Public Use
  Company Number: US-AMGEN-USASP2012064893

PATIENT
  Sex: Female

DRUGS (9)
  1. ENBREL [Suspect]
     Indication: RHEUMATOID ARTHRITIS
     Dosage: 50 MG, QWK
     Route: 058
  2. ULTRAM [Concomitant]
     Dosage: 50 MG, UNK
  3. METHOTREXATE [Concomitant]
     Dosage: 2.5 MG, UNK
  4. SYNTHROID [Concomitant]
     Dosage: 50 MUG, UNK
  5. FOLIC ACID [Concomitant]
     Dosage: 1 MG, UNK
  6. VITAMIN E                          /00110501/ [Concomitant]
     Dosage: 1000 UNIT, UNK
  7. PROZAC [Concomitant]
     Dosage: 10 MG, UNK
  8. CALCIUM [Concomitant]
     Dosage: 500 UNK, UNK
  9. VITAMIN B 12 [Concomitant]
     Dosage: 100 MUG, UNK

REACTIONS (1)
  - Injection site pain [Unknown]
